FAERS Safety Report 8231570-3 (Version None)
Quarter: 2012Q1

REPORT INFORMATION
  Report Type: 
  Country: None (occurrence: None)
  Receive Date: 20120323
  Receipt Date: 20120320
  Transmission Date: 20120608
  Serious: Yes (Other)
  Sender: FDA-Public Use
  Company Number: BR-PFIZER INC-2012063333

PATIENT
  Age: 43 Year
  Sex: Female
  Weight: 48 kg

DRUGS (5)
  1. ONBRIZE [Concomitant]
     Indication: EMPHYSEMA
     Dosage: STRENGTH 500 UG AT AN UNSPECIFIED DOSAGE AND FREQUENCY
     Route: 055
     Dates: start: 20120305
  2. DAXAS [Concomitant]
     Indication: EMPHYSEMA
     Dosage: STRENGTH 500 MG AT 1 TABLET EVERY NIGHT
     Dates: start: 20120305
  3. VARENICLINE TARTRATE [Suspect]
     Dosage: 1 MG, 2X/DAY
     Route: 048
     Dates: start: 20120301
  4. DORFLEX [Concomitant]
     Indication: MYALGIA
     Dosage: UNK
     Dates: start: 20120305
  5. VARENICLINE TARTRATE [Suspect]
     Indication: TOBACCO USER
     Dosage: 0.5 MG, 1X/DAY
     Route: 048
     Dates: start: 20120305, end: 20120301

REACTIONS (17)
  - PAIN IN EXTREMITY [None]
  - DRY MOUTH [None]
  - DIARRHOEA [None]
  - MYALGIA [None]
  - DYSURIA [None]
  - HEADACHE [None]
  - ABDOMINAL PAIN [None]
  - INSOMNIA [None]
  - ABDOMINAL PAIN UPPER [None]
  - PAIN [None]
  - FEELING ABNORMAL [None]
  - EATING DISORDER [None]
  - SINUSITIS [None]
  - WEIGHT DECREASED [None]
  - LUNG DISORDER [None]
  - VAGINAL DISCHARGE [None]
  - APHAGIA [None]
